FAERS Safety Report 16393501 (Version 1)
Quarter: 2019Q2

REPORT INFORMATION
  Report Type: Spontaneous
  Country: GB (occurrence: GB)
  Receive Date: 20190605
  Receipt Date: 20190605
  Transmission Date: 20190711
  Serious: Yes (Other)
  Sender: FDA-Public Use
  Company Number: GB-PFIZER INC-2019215864

PATIENT
  Age: 93 Year
  Sex: Female

DRUGS (2)
  1. OMEPRAZOLE. [Concomitant]
     Active Substance: OMEPRAZOLE
     Dosage: UNK
  2. CELECOXIB. [Suspect]
     Active Substance: CELECOXIB
     Indication: ARTHRITIS
     Dosage: 100 MG, DAILY
     Route: 048
     Dates: start: 20190216, end: 20190301

REACTIONS (9)
  - Dyspnoea [Not Recovered/Not Resolved]
  - Malaise [Not Recovered/Not Resolved]
  - Heart rate decreased [Unknown]
  - Asthenia [Not Recovered/Not Resolved]
  - Cardiac fibrillation [Not Recovered/Not Resolved]
  - Syncope [Not Recovered/Not Resolved]
  - Disturbance in attention [Unknown]
  - Pulmonary oedema [Not Recovered/Not Resolved]
  - Arthritis [Not Recovered/Not Resolved]

NARRATIVE: CASE EVENT DATE: 2019
